FAERS Safety Report 7486432-6 (Version None)
Quarter: 2011Q2

REPORT INFORMATION
  Report Type: 
  Country: None (occurrence: None)
  Receive Date: 20110516
  Receipt Date: 20110516
  Transmission Date: 20111010
  Serious: Yes (Hospitalization)
  Sender: FDA-Public Use
  Company Number: None

PATIENT
  Age: 50 Year
  Sex: Male
  Weight: 77.1115 kg

DRUGS (1)
  1. LEVAQUIN [Suspect]
     Indication: DIVERTICULITIS
     Dosage: 7 ONE A DAY PO
     Route: 048
     Dates: start: 20110502, end: 20110509

REACTIONS (5)
  - CHEST DISCOMFORT [None]
  - TENDON DISORDER [None]
  - MUSCULOSKELETAL STIFFNESS [None]
  - JOINT SWELLING [None]
  - TENDON PAIN [None]
